FAERS Safety Report 19577960 (Version 8)
Quarter: 2025Q3

REPORT INFORMATION
  Report Type: Report from Study
  Country: US (occurrence: US)
  Receive Date: 20210719
  Receipt Date: 20250712
  Transmission Date: 20251021
  Serious: Yes (Other)
  Sender: TAKEDA
  Company Number: US-SHIRE-US201913151AA

PATIENT
  Sex: Female

DRUGS (2)
  1. HUMAN IMMUNOGLOBULIN G [Suspect]
     Active Substance: HUMAN IMMUNOGLOBULIN G
     Indication: Immunodeficiency common variable
  2. HUMAN IMMUNOGLOBULIN G [Suspect]
     Active Substance: HUMAN IMMUNOGLOBULIN G
     Indication: Primary immunodeficiency syndrome

REACTIONS (19)
  - Nasopharyngitis [Unknown]
  - Pituitary tumour [Unknown]
  - Autoimmune disorder [Unknown]
  - Systemic lupus erythematosus [Unknown]
  - Rheumatoid arthritis [Unknown]
  - Bipolar disorder [Unknown]
  - Type 1 diabetes mellitus [Unknown]
  - Inability to afford medication [Unknown]
  - White matter lesion [Unknown]
  - Injection site pain [Unknown]
  - Fatigue [Unknown]
  - Immunoglobulins abnormal [Unknown]
  - Memory impairment [Unknown]
  - COVID-19 [Unknown]
  - Epistaxis [Unknown]
  - Sinusitis [Unknown]
  - Bladder disorder [Unknown]
  - Blood immunoglobulin A decreased [Unknown]
  - Dry eye [Unknown]
